FAERS Safety Report 23625672 (Version 3)
Quarter: 2024Q2

REPORT INFORMATION
  Report Type: Spontaneous
  Country: US (occurrence: US)
  Receive Date: 20240313
  Receipt Date: 20240530
  Transmission Date: 20240716
  Serious: No
  Sender: FDA-Public Use
  Company Number: US-AMGEN-USASP2024049356

PATIENT
  Age: 54 Year
  Sex: Female

DRUGS (5)
  1. OTEZLA [Suspect]
     Active Substance: APREMILAST
     Indication: Psoriasis
     Dosage: 30 MILLIGRAM, BID
     Route: 048
     Dates: start: 20230228
  2. CALCITRENE [Concomitant]
     Active Substance: CALCIPOTRIENE
  3. CLOBETASOL [Concomitant]
     Active Substance: CLOBETASOL
  4. VITAMINS [Concomitant]
     Active Substance: VITAMINS
  5. TRIAMCINOLONE ACETONIDE [Concomitant]
     Active Substance: TRIAMCINOLONE ACETONIDE
     Dosage: 40 MILLIGRAM PER MILLITER

REACTIONS (7)
  - Psoriasis [Recovering/Resolving]
  - Discomfort [Not Recovered/Not Resolved]
  - Diarrhoea [Unknown]
  - Fatigue [Unknown]
  - Arthralgia [Unknown]
  - Product dose omission issue [Unknown]
  - Therapy non-responder [Unknown]

NARRATIVE: CASE EVENT DATE: 20240301
